FAERS Safety Report 9835129 (Version 2)
Quarter: 2014Q1

REPORT INFORMATION
  Report Type: Spontaneous
  Country: US (occurrence: US)
  Receive Date: 20140122
  Receipt Date: 20140122
  Transmission Date: 20141002
  Serious: No
  Sender: FDA-Public Use
  Company Number: US-BRISTOL-MYERS SQUIBB COMPANY-19804830

PATIENT
  Age: 57 Year
  Sex: Female

DRUGS (9)
  1. ELIQUIS [Suspect]
     Indication: ATRIAL FIBRILLATION
     Route: 048
     Dates: start: 20131022, end: 20131102
  2. COUMADIN [Suspect]
  3. LISINOPRIL [Concomitant]
  4. METOPROLOL [Concomitant]
  5. PRILOSEC [Concomitant]
  6. NIACIN [Concomitant]
  7. FISH OIL [Concomitant]
  8. VITAMIN E [Concomitant]
  9. MULTIVITAMIN [Concomitant]

REACTIONS (8)
  - Hypertension [Unknown]
  - Nausea [Unknown]
  - Pain [Unknown]
  - Abdominal pain upper [Unknown]
  - Eye swelling [Unknown]
  - Diarrhoea [Unknown]
  - Headache [Unknown]
  - Back pain [Unknown]
